FAERS Safety Report 16420363 (Version 1)
Quarter: 2019Q2

REPORT INFORMATION
  Report Type: Spontaneous
  Country: US (occurrence: US)
  Receive Date: 20190506
  Receipt Date: 20190506
  Transmission Date: 20190711
  Serious: Yes (Hospitalization, Other)
  Sender: FDA-Public Use
  Company Number: None

PATIENT
  Age: 40 Year
  Sex: Male
  Weight: 100.7 kg

DRUGS (1)
  1. LAMOTRIGINE. [Suspect]
     Active Substance: LAMOTRIGINE
     Indication: BIPOLAR I DISORDER
     Dates: start: 20181004, end: 20181021

REACTIONS (5)
  - Tachycardia [None]
  - Nuchal rigidity [None]
  - Headache [None]
  - Meningitis aseptic [None]
  - Pyrexia [None]

NARRATIVE: CASE EVENT DATE: 20181021
